FAERS Safety Report 18438001 (Version 1)
Quarter: 2020Q4

REPORT INFORMATION
  Report Type: Spontaneous
  Country: PT (occurrence: PT)
  Receive Date: 20201028
  Receipt Date: 20201028
  Transmission Date: 20210114
  Serious: Yes (Hospitalization)
  Sender: FDA-Public Use
  Company Number: PT-BAUSCH-BL-2020-030517

PATIENT
  Sex: Male

DRUGS (4)
  1. METAMIZOLE [Interacting]
     Active Substance: METAMIZOLE
     Indication: BACK PAIN
     Route: 065
  2. PREGABALIN. [Interacting]
     Active Substance: PREGABALIN
     Indication: BACK PAIN
     Route: 065
  3. METOCLOPRAMID [Suspect]
     Active Substance: METOCLOPRAMIDE
     Indication: BACK PAIN
     Route: 065
  4. MIODIA [Interacting]
     Active Substance: CYCLOBENZAPRINE
     Indication: BACK PAIN
     Route: 048

REACTIONS (4)
  - Dysarthria [Unknown]
  - Ataxia [Unknown]
  - Dyskinesia [Unknown]
  - Drug interaction [Unknown]
